FAERS Safety Report 24108184 (Version 1)
Quarter: 2024Q3

REPORT INFORMATION
  Report Type: Spontaneous
  Country: PL (occurrence: PL)
  Receive Date: 20240718
  Receipt Date: 20240718
  Transmission Date: 20241016
  Serious: Yes (Death, Other)
  Sender: Steriscience PTE
  Company Number: PL-STERISCIENCE B.V.-2024-ST-001040

PATIENT
  Age: 61 Year
  Sex: Male

DRUGS (4)
  1. AMPICILLIN [Suspect]
     Active Substance: AMPICILLIN
     Indication: Encephalitis brain stem
     Dosage: 6 X 2 G
     Route: 042
  2. AMPICILLIN [Suspect]
     Active Substance: AMPICILLIN
     Indication: Listeriosis
  3. CEFTAZIDIME [Suspect]
     Active Substance: CEFTAZIDIME
     Indication: Encephalitis brain stem
     Dosage: 3 X 2 G
     Route: 042
  4. CEFTAZIDIME [Suspect]
     Active Substance: CEFTAZIDIME
     Indication: Listeriosis

REACTIONS (2)
  - Drug ineffective [Fatal]
  - Condition aggravated [Unknown]
